FAERS Safety Report 5889803-4 (Version None)
Quarter: 2008Q3

REPORT INFORMATION
  Report Type: 
  Country: None (occurrence: None)
  Receive Date: 20080919
  Receipt Date: 20080916
  Transmission Date: 20090109
  Serious: Yes (Disabling)
  Sender: FDA-Public Use
  Company Number: US-PURDUE-USA_2008_0034948

PATIENT
  Age: 44 Year
  Sex: Female

DRUGS (1)
  1. DILAUDID [Suspect]
     Indication: PAIN

REACTIONS (2)
  - EUPHORIC MOOD [None]
  - ROAD TRAFFIC ACCIDENT [None]
